FAERS Safety Report 5915032-1 (Version None)
Quarter: 2008Q4

REPORT INFORMATION
  Report Type: 
  Country: None (occurrence: None)
  Receive Date: 20081010
  Receipt Date: 20081003
  Transmission Date: 20090506
  Serious: Yes (Hospitalization)
  Sender: FDA-Public Use
  Company Number: IT-ABBOTT-08P-083-0476777-00

PATIENT
  Sex: Female
  Weight: 64 kg

DRUGS (9)
  1. HUMIRA [Suspect]
     Indication: RHEUMATOID ARTHRITIS
     Route: 058
     Dates: start: 20050419, end: 20080601
  2. COMMERCIAL HUMIRA [Concomitant]
     Indication: RHEUMATOID ARTHRITIS
     Route: 058
     Dates: start: 20040901
  3. LEFLUNOMIDE [Concomitant]
     Indication: RHEUMATOID ARTHRITIS
  4. METHYLPREDNISOLONE [Concomitant]
     Indication: RHEUMATOID ARTHRITIS
     Dates: start: 19940101
  5. RISEDRONATE SODIUM [Concomitant]
     Indication: OSTEOPOROSIS
  6. CALCITRIOL [Concomitant]
     Indication: OSTEOPOROSIS
  7. CAPOZIDE 25/15 [Concomitant]
     Indication: HYPERTENSION
     Dosage: 50/25 MG
     Dates: end: 20080630
  8. IRBESARTAN AND HYDROCHLOROTHIAZIDE [Concomitant]
     Indication: HYPERTENSION
     Dates: start: 20080630
  9. ACETYLSALICYLIC ACID SRT [Concomitant]
     Indication: HYPERTENSION
     Dates: start: 20080630

REACTIONS (1)
  - ISCHAEMIC STROKE [None]
